FAERS Safety Report 5939573-6 (Version None)
Quarter: 2008Q4

REPORT INFORMATION
  Report Type: 
  Country: None (occurrence: None)
  Receive Date: 20081030
  Receipt Date: 20081015
  Transmission Date: 20090506
  Serious: Yes (Hospitalization)
  Sender: FDA-Public Use
  Company Number: IDA-00140

PATIENT
  Age: 66 Year
  Sex: Female

DRUGS (2)
  1. INDERAL [Suspect]
  2. DILANTIN [Suspect]
     Indication: CONVULSION

REACTIONS (2)
  - CONFUSIONAL STATE [None]
  - SHOCK [None]
